FAERS Safety Report 20356067 (Version 1)
Quarter: 2022Q1

REPORT INFORMATION
  Report Type: Spontaneous
  Country: US (occurrence: None)
  Receive Date: 20220120
  Receipt Date: 20220120
  Transmission Date: 20220424
  Serious: Yes (Death)
  Sender: FDA-Public Use
  Company Number: US-ROCHE-2999299

PATIENT

DRUGS (1)
  1. ACTEMRA [Suspect]
     Active Substance: TOCILIZUMAB
     Indication: Product used for unknown indication
     Route: 065

REACTIONS (7)
  - Death [Fatal]
  - Neoplasm malignant [Fatal]
  - Gastric disorder [Fatal]
  - Liver disorder [Fatal]
  - Hypertension [Fatal]
  - Platelet count increased [Fatal]
  - Neutrophil count increased [Fatal]
